FAERS Safety Report 19066842 (Version 1)
Quarter: 2021Q1

REPORT INFORMATION
  Report Type: Spontaneous
  Country: US (occurrence: US)
  Receive Date: 20210329
  Receipt Date: 20210329
  Transmission Date: 20210420
  Serious: No
  Sender: FDA-Public Use
  Company Number: US-AUROBINDO-AUR-APL-2020-033608

PATIENT
  Age: 51 Year
  Sex: Female
  Weight: 59 kg

DRUGS (2)
  1. SERTRALINE HYDROCHLORIDE TABLETS 50MG [Suspect]
     Active Substance: SERTRALINE HYDROCHLORIDE
     Indication: ANXIETY
     Dosage: UNK, FOR LONG TIME
     Route: 065
  2. SERTRALINE HYDROCHLORIDE TABLETS 50MG [Suspect]
     Active Substance: SERTRALINE HYDROCHLORIDE
     Dosage: 1 DOSAGE FORM, DAILY
     Route: 065
     Dates: end: 20200629

REACTIONS (8)
  - Anxiety [Recovered/Resolved]
  - Dyspepsia [Recovered/Resolved]
  - Panic attack [Recovered/Resolved]
  - Drug ineffective [Unknown]
  - Feeling abnormal [Recovered/Resolved]
  - Abdominal discomfort [Recovered/Resolved]
  - Dizziness [Not Recovered/Not Resolved]
  - Product quality issue [Unknown]
